FAERS Safety Report 17833397 (Version 2)
Quarter: 2021Q2

REPORT INFORMATION
  Report Type: Other
  Country: US (occurrence: US)
  Receive Date: 20200528
  Receipt Date: 20210501
  Transmission Date: 20210717
  Serious: Yes (Hospitalization)
  Sender: FDA-Public Use
  Company Number: US-ROCHE-2601919

PATIENT
  Age: 49 Year
  Sex: Female
  Weight: 65.83 kg

DRUGS (14)
  1. OCREVUS [Suspect]
     Active Substance: OCRELIZUMAB
     Indication: RELAPSING MULTIPLE SCLEROSIS
     Dosage: DAY 1 AND DAY 15?ONGOING: YES
     Route: 042
     Dates: start: 20180625
  2. OXYBUTYNIN CHLORIDE ER [Concomitant]
     Active Substance: OXYBUTYNIN CHLORIDE
     Indication: BLADDER SPASM
     Dosage: AT NIGHT
     Route: 048
  3. LYRICA [Concomitant]
     Active Substance: PREGABALIN
     Indication: NEURALGIA
     Dosage: IN AM
     Route: 048
  4. TYLENOL [Concomitant]
     Active Substance: ACETAMINOPHEN
     Indication: PYREXIA
  5. OXYCODONE [Concomitant]
     Active Substance: OXYCODONE
     Indication: PAIN
     Route: 048
  6. LYRICA [Concomitant]
     Active Substance: PREGABALIN
     Dosage: IN PM
     Route: 048
  7. TIZANIDINE. [Concomitant]
     Active Substance: TIZANIDINE
     Indication: MUSCLE SPASMS
     Dosage: UP TO 6 PER DAY
     Route: 048
  8. TYLENOL [Concomitant]
     Active Substance: ACETAMINOPHEN
     Indication: PAIN
     Route: 048
  9. TRILEPTAL [Concomitant]
     Active Substance: OXCARBAZEPINE
     Indication: NEURALGIA
     Route: 048
  10. ADVIL [Concomitant]
     Active Substance: IBUPROFEN
     Indication: PAIN
     Route: 048
  11. MEDICAL MARIJUANA [Concomitant]
     Active Substance: CANNABIS SATIVA SUBSP. INDICA TOP
     Indication: MUSCLE SPASMS
  12. AMPYRA [Concomitant]
     Active Substance: DALFAMPRIDINE
     Route: 048
  13. MAXALT [Concomitant]
     Active Substance: RIZATRIPTAN BENZOATE
     Indication: MIGRAINE
     Route: 048
  14. MEDICAL MARIJUANA [Concomitant]
     Active Substance: CANNABIS SATIVA SUBSP. INDICA TOP
     Indication: PAIN

REACTIONS (16)
  - Pain in extremity [Recovered/Resolved]
  - Visual impairment [Not Recovered/Not Resolved]
  - Memory impairment [Not Recovered/Not Resolved]
  - Hyperhidrosis [Recovered/Resolved]
  - Chills [Recovered/Resolved]
  - Muscle spasms [Not Recovered/Not Resolved]
  - Contusion [Recovering/Resolving]
  - Pain [Recovered/Resolved]
  - Kidney infection [Recovered/Resolved]
  - Uhthoff^s phenomenon [Recovered/Resolved]
  - Urinary tract infection [Not Recovered/Not Resolved]
  - Fall [Unknown]
  - Foot deformity [Not Recovered/Not Resolved]
  - Pyrexia [Recovered/Resolved]
  - Bladder disorder [Not Recovered/Not Resolved]
  - Weight decreased [Not Recovered/Not Resolved]

NARRATIVE: CASE EVENT DATE: 202004
